FAERS Safety Report 4923639-3 (Version None)
Quarter: 2006Q1

REPORT INFORMATION
  Report Type: 
  Country: None (occurrence: None)
  Receive Date: 20060227
  Receipt Date: 20030605
  Transmission Date: 20060701
  Serious: Yes (Disabling)
  Sender: FDA-Public Use
  Company Number: US-MERCK-0306USA00830

PATIENT
  Age: 46 Year
  Sex: Female
  Weight: 125 kg

DRUGS (14)
  1. VIOXX [Suspect]
     Indication: ARTHRITIS
     Route: 048
     Dates: start: 20000511, end: 20010617
  2. VIOXX [Suspect]
     Route: 048
     Dates: start: 20000511, end: 20010617
  3. VIOXX [Suspect]
     Indication: BACK PAIN
     Route: 048
     Dates: start: 20000511, end: 20010617
  4. VIOXX [Suspect]
     Route: 048
     Dates: start: 20000511, end: 20010617
  5. ULTRAM [Concomitant]
     Route: 065
  6. METHOCARBAMOL [Concomitant]
     Route: 065
  7. VASOTEC RPD [Concomitant]
     Indication: HYPERTENSION
     Route: 048
  8. [THERAPY UNSPECIFIED] [Concomitant]
     Route: 065
  9. CALCIUM (UNSPECIFIED) [Concomitant]
     Route: 065
  10. POTASSIUM (UNSPECIFIED) [Concomitant]
     Route: 065
  11. PREMARIN [Concomitant]
     Route: 065
  12. PAXIL [Concomitant]
     Route: 065
  13. ALBUTEROL [Concomitant]
     Route: 065
  14. HYDROCHLOROTHIAZIDE [Concomitant]
     Route: 065

REACTIONS (9)
  - ADVERSE EVENT [None]
  - BACK INJURY [None]
  - BRONCHIAL HYPERACTIVITY [None]
  - GASTRITIS [None]
  - HYPERTENSION [None]
  - INJURY [None]
  - INSOMNIA [None]
  - SACROILIITIS [None]
  - VAGINAL INFECTION [None]
